FAERS Safety Report 8795626 (Version 1)
Quarter: 2012Q4

REPORT INFORMATION
  Report Type: 
  Country: US (occurrence: US)
  Receive Date: 20120917
  Receipt Date: 20120917
  Transmission Date: 20130627
  Serious: No
  Sender: FDA-Public Use
  Company Number: US-ASTRAZENECA-2012SE57706

PATIENT
  Age: 86 Year
  Sex: Female

DRUGS (1)
  1. CAPRELSA [Suspect]
     Route: 048

REACTIONS (5)
  - Adverse drug reaction [Unknown]
  - Urticaria [Unknown]
  - Photosensitivity reaction [Unknown]
  - Rash [Unknown]
  - Skin exfoliation [Unknown]
